FAERS Safety Report 19568707 (Version 5)
Quarter: 2023Q4

REPORT INFORMATION
  Report Type: Spontaneous
  Country: US (occurrence: US)
  Receive Date: 20210715
  Receipt Date: 20231020
  Transmission Date: 20240110
  Serious: Yes (Other)
  Sender: FDA-Public Use
  Company Number: US-PFIZER INC-2021834282

PATIENT
  Age: 76 Year
  Sex: Female

DRUGS (1)
  1. XELJANZ XR [Suspect]
     Active Substance: TOFACITINIB CITRATE
     Dosage: 11 MG

REACTIONS (4)
  - Gastrointestinal fungal infection [Not Recovered/Not Resolved]
  - Parkinson^s disease [Unknown]
  - Hypoacusis [Not Recovered/Not Resolved]
  - Auditory disorder [Not Recovered/Not Resolved]
